FAERS Safety Report 9414046 (Version 7)
Quarter: 2014Q1

REPORT INFORMATION
  Report Type: Report from Study
  Country: FR (occurrence: FR)
  Receive Date: 20130723
  Receipt Date: 20140121
  Transmission Date: 20141002
  Serious: Yes (Hospitalization, Other)
  Sender: FDA-Public Use
  Company Number: FR-ROCHE-1240355

PATIENT
  Age: 36 Year
  Sex: Female

DRUGS (18)
  1. PERTUZUMAB [Suspect]
     Indication: HER-2 POSITIVE BREAST CANCER
     Route: 042
     Dates: start: 20130530
  2. PERTUZUMAB [Suspect]
     Dosage: LAST DOSE PRIOR TO SAE EDEMA WAS 10/JUL/2013, LAST DOSE PRIOR TO ALLERGIC REACTION WAS 20/JUN/2013
     Route: 042
     Dates: end: 20130724
  3. TRASTUZUMAB [Suspect]
     Indication: HER-2 POSITIVE BREAST CANCER
     Dosage: 577 MG
     Route: 042
     Dates: start: 20130531
  4. TRASTUZUMAB [Suspect]
     Dosage: DOSE 420 MG, LAST DOSE PRIOR TO ALLERGIC REACTION 20/JUN/2013
     Route: 042
     Dates: end: 20130724
  5. PACLITAXEL [Suspect]
     Indication: HER-2 POSITIVE BREAST CANCER
     Dosage: LAST DOSE PRIOR TO QUINCKES EDEMA  WAS 27/JUN/2013 (144MG), LAST DOSE PRIOR TO ALLERGIC REACTION 12-
     Route: 042
     Dates: start: 20130531, end: 20130724
  6. MORPHINE SULFATE [Concomitant]
     Route: 065
     Dates: start: 20130523
  7. MORPHINE SULFATE [Concomitant]
     Route: 065
     Dates: start: 20130523, end: 20130626
  8. DAFALGAN [Concomitant]
     Route: 065
     Dates: start: 20130523
  9. PYOSTACINE [Concomitant]
     Route: 065
     Dates: start: 20130705, end: 20130714
  10. ACTISKENAN [Concomitant]
     Route: 065
     Dates: start: 20130523, end: 20130626
  11. VOGALENE [Concomitant]
     Route: 065
     Dates: end: 20130620
  12. VOGALENE [Concomitant]
     Route: 065
     Dates: start: 20130620, end: 20130626
  13. DEXAMETHASONE [Concomitant]
     Indication: PREMEDICATION
     Route: 065
     Dates: start: 20130531, end: 20130531
  14. DEXAMETHASONE [Concomitant]
     Route: 065
     Dates: start: 20130606
  15. DEXCHLORPHENIRAMINE [Concomitant]
     Indication: PREMEDICATION
     Route: 065
     Dates: start: 20130531
  16. RANITIDINE [Concomitant]
     Indication: PREMEDICATION
     Route: 065
     Dates: start: 20130531
  17. ONDANSETRON [Concomitant]
     Indication: PREMEDICATION
     Route: 065
     Dates: start: 20130531
  18. ROCEPHINE [Concomitant]
     Route: 065
     Dates: start: 20130704, end: 20130704

REACTIONS (2)
  - Angioedema [Recovered/Resolved]
  - Drug hypersensitivity [Recovered/Resolved]
